FAERS Safety Report 25826885 (Version 1)
Quarter: 2025Q3

REPORT INFORMATION
  Report Type: Report from Study
  Country: JP (occurrence: JP)
  Receive Date: 20250920
  Receipt Date: 20250920
  Transmission Date: 20251021
  Serious: Yes (Other)
  Sender: UCB
  Company Number: JP-UCBJ-CD202512093UCBPHAPROD

PATIENT
  Sex: Male
  Weight: 17.7 kg

DRUGS (37)
  1. FENFLURAMINE HYDROCHLORIDE [Suspect]
     Active Substance: FENFLURAMINE HYDROCHLORIDE
     Indication: Lennox-Gastaut syndrome
     Dosage: 0.06 MILLIGRAM/KILOGRAM, ONCE DAILY (QD)
     Route: 048
     Dates: start: 20240627, end: 20240906
  2. FENFLURAMINE HYDROCHLORIDE [Suspect]
     Active Substance: FENFLURAMINE HYDROCHLORIDE
     Dosage: 0.06 MILLIGRAM/KILOGRAM, 2X/DAY (BID)
     Route: 048
     Dates: start: 20240907, end: 20240920
  3. FENFLURAMINE HYDROCHLORIDE [Suspect]
     Active Substance: FENFLURAMINE HYDROCHLORIDE
     Dosage: 0.09 MILLIGRAM/KILOGRAM, 2X/DAY (BID)
     Route: 048
     Dates: start: 20240921, end: 20241004
  4. FENFLURAMINE HYDROCHLORIDE [Suspect]
     Active Substance: FENFLURAMINE HYDROCHLORIDE
     Dosage: 0.12 MILLIGRAM/KILOGRAM, 2X/DAY (BID)
     Route: 048
     Dates: start: 20241005, end: 20241018
  5. FENFLURAMINE HYDROCHLORIDE [Suspect]
     Active Substance: FENFLURAMINE HYDROCHLORIDE
     Dosage: 0.15 MILLIGRAM/KILOGRAM, 2X/DAY (BID)
     Route: 048
     Dates: start: 20241019, end: 20241108
  6. FENFLURAMINE HYDROCHLORIDE [Suspect]
     Active Substance: FENFLURAMINE HYDROCHLORIDE
     Dosage: 0.18 MILLIGRAM/KILOGRAM, 2X/DAY (BID)
     Route: 048
     Dates: start: 20241109, end: 20241129
  7. FENFLURAMINE HYDROCHLORIDE [Suspect]
     Active Substance: FENFLURAMINE HYDROCHLORIDE
     Dosage: 0.21 MILLIGRAM/KILOGRAM, 2X/DAY (BID)
     Route: 048
     Dates: start: 20241130, end: 20241220
  8. FENFLURAMINE HYDROCHLORIDE [Suspect]
     Active Substance: FENFLURAMINE HYDROCHLORIDE
     Dosage: 0.24 MILLIGRAM/KILOGRAM, 2X/DAY (BID)
     Route: 048
     Dates: start: 20241221, end: 20250122
  9. FENFLURAMINE HYDROCHLORIDE [Suspect]
     Active Substance: FENFLURAMINE HYDROCHLORIDE
     Dosage: 0.27 MILLIGRAM/KILOGRAM, 2X/DAY (BID)
     Route: 048
     Dates: start: 20250123, end: 20250205
  10. FENFLURAMINE HYDROCHLORIDE [Suspect]
     Active Substance: FENFLURAMINE HYDROCHLORIDE
     Dosage: 0.31 MILLIGRAM/KILOGRAM, 2X/DAY (BID)
     Route: 048
     Dates: start: 20250206, end: 20250209
  11. FENFLURAMINE HYDROCHLORIDE [Suspect]
     Active Substance: FENFLURAMINE HYDROCHLORIDE
     Dosage: 0.24 MILLIGRAM/KILOGRAM, 2X/DAY (BID)
     Route: 048
     Dates: start: 20250210, end: 20250216
  12. FENFLURAMINE HYDROCHLORIDE [Suspect]
     Active Substance: FENFLURAMINE HYDROCHLORIDE
     Dosage: 0.31 MILLIGRAM/KILOGRAM, 2X/DAY (BID)
     Route: 048
     Dates: start: 20250217, end: 20250302
  13. FENFLURAMINE HYDROCHLORIDE [Suspect]
     Active Substance: FENFLURAMINE HYDROCHLORIDE
     Dosage: 0.34 MILLIGRAM/KILOGRAM, 2X/DAY (BID)
     Route: 048
     Dates: start: 20250303, end: 20250316
  14. FENFLURAMINE HYDROCHLORIDE [Suspect]
     Active Substance: FENFLURAMINE HYDROCHLORIDE
     Dosage: 0.37 MILLIGRAM/KILOGRAM, 2X/DAY (BID)
     Route: 048
     Dates: start: 20250317, end: 20250608
  15. FENFLURAMINE HYDROCHLORIDE [Suspect]
     Active Substance: FENFLURAMINE HYDROCHLORIDE
     Dosage: 0.31 MILLIGRAM/KILOGRAM, 2X/DAY (BID)
     Route: 048
     Dates: start: 20250609, end: 20250615
  16. FENFLURAMINE HYDROCHLORIDE [Suspect]
     Active Substance: FENFLURAMINE HYDROCHLORIDE
     Dosage: 0.24 MILLIGRAM/KILOGRAM, 2X/DAY (BID)
     Route: 048
     Dates: start: 20250616, end: 20250622
  17. FENFLURAMINE HYDROCHLORIDE [Suspect]
     Active Substance: FENFLURAMINE HYDROCHLORIDE
     Dosage: 0.12 MILLIGRAM/KILOGRAM, 2X/DAY (BID)
     Route: 048
     Dates: start: 20250623, end: 20250630
  18. LEVOCARNITINE FF [Concomitant]
     Indication: Product used for unknown indication
     Dosage: 100 MILLIGRAM, ONCE DAILY (QD)
     Route: 051
  19. DEPAKENE [Concomitant]
     Active Substance: VALPROIC ACID
     Indication: Lennox-Gastaut syndrome
     Dosage: 400 MILLIGRAM, ONCE DAILY (QD)
     Route: 051
  20. DAYVIGO [Concomitant]
     Active Substance: LEMBOREXANT
     Indication: Product used for unknown indication
     Dosage: 3 MILLIGRAM, ONCE DAILY (QD)
     Route: 051
  21. CARBOCYSTEINE [Concomitant]
     Active Substance: CARBOCYSTEINE
     Indication: Product used for unknown indication
     Dosage: 500 MILLIGRAM, ONCE DAILY (QD)
     Route: 051
     Dates: end: 20240320
  22. CARBOCYSTEINE [Concomitant]
     Active Substance: CARBOCYSTEINE
     Dosage: 420 MILLIGRAM, ONCE DAILY (QD)
     Route: 051
     Dates: start: 20240321
  23. MAGNESIUM OXIDE [Concomitant]
     Active Substance: MAGNESIUM OXIDE
     Indication: Product used for unknown indication
     Dosage: 0.2 GRAM, ONCE DAILY (QD)
     Route: 051
     Dates: end: 20240320
  24. MAGNESIUM OXIDE [Concomitant]
     Active Substance: MAGNESIUM OXIDE
     Dosage: 0.3 GRAM, ONCE DAILY (QD)
     Route: 051
     Dates: start: 20240321
  25. TEGRETOL [Concomitant]
     Active Substance: CARBAMAZEPINE
     Indication: Lennox-Gastaut syndrome
     Dosage: 120 MILLIGRAM, ONCE DAILY (QD)
     Route: 051
     Dates: end: 20240320
  26. TEGRETOL [Concomitant]
     Active Substance: CARBAMAZEPINE
     Dosage: 150 MILLIGRAM, ONCE DAILY (QD)
     Route: 051
     Dates: start: 20240321, end: 20240410
  27. TEGRETOL [Concomitant]
     Active Substance: CARBAMAZEPINE
     Dosage: 180 MILLIGRAM, ONCE DAILY (QD)
     Route: 051
     Dates: start: 20240411, end: 20240501
  28. TEGRETOL [Concomitant]
     Active Substance: CARBAMAZEPINE
     Dosage: 210 MILLIGRAM, ONCE DAILY (QD)
     Route: 051
     Dates: start: 20240502, end: 20240522
  29. TEGRETOL [Concomitant]
     Active Substance: CARBAMAZEPINE
     Dosage: 240 MILLIGRAM, ONCE DAILY (QD)
     Route: 051
     Dates: start: 20240523, end: 20240626
  30. TEGRETOL [Concomitant]
     Active Substance: CARBAMAZEPINE
     Dosage: 180 MILLIGRAM, ONCE DAILY (QD)
     Route: 051
     Dates: start: 20240627, end: 20240713
  31. TEGRETOL [Concomitant]
     Active Substance: CARBAMAZEPINE
     Dosage: 120 MILLIGRAM, ONCE DAILY (QD)
     Route: 051
     Dates: start: 20240714, end: 20240724
  32. TEGRETOL [Concomitant]
     Active Substance: CARBAMAZEPINE
     Dosage: 60 MILLIGRAM, ONCE DAILY (QD)
     Route: 051
     Dates: start: 20240725, end: 20240807
  33. TEGRETOL [Concomitant]
     Active Substance: CARBAMAZEPINE
     Dosage: 30 MILLIGRAM, ONCE DAILY (QD)
     Route: 051
     Dates: start: 20240808, end: 20240822
  34. GLYCERIN [Concomitant]
     Active Substance: GLYCERIN
     Indication: Product used for unknown indication
     Dosage: 30 MILLIGRAM, ONCE DAILY (QD)
     Route: 054
  35. FEXOFENADINE HYDROCHLORIDE [Concomitant]
     Active Substance: FEXOFENADINE HYDROCHLORIDE
     Indication: Product used for unknown indication
     Dosage: 0.6 GRAM, ONCE DAILY (QD)
     Route: 051
  36. TRICLOFOS SODIUM [Concomitant]
     Active Substance: TRICLOFOS SODIUM
     Indication: Product used for unknown indication
     Dosage: 4 MILLILITER, ONCE DAILY (QD)
     Route: 051
  37. DIAZEPAM [Concomitant]
     Active Substance: DIAZEPAM
     Indication: Lennox-Gastaut syndrome
     Dosage: 6 MILLIGRAM, ONCE DAILY (QD)
     Route: 054

REACTIONS (6)
  - Epilepsy [Recovered/Resolved]
  - Decreased appetite [Recovering/Resolving]
  - Somnolence [Recovered/Resolved]
  - Therapeutic response decreased [Unknown]
  - Prescribed underdose [Unknown]
  - Off label use [Unknown]

NARRATIVE: CASE EVENT DATE: 20240627
